FAERS Safety Report 23599147 (Version 4)
Quarter: 2024Q4

REPORT INFORMATION
  Report Type: Spontaneous
  Country: CA (occurrence: CA)
  Receive Date: 20240306
  Receipt Date: 20241129
  Transmission Date: 20250115
  Serious: Yes (Other)
  Sender: CELLTRION
  Company Number: CA-CELLTRION INC.-2024CA005501

PATIENT

DRUGS (4)
  1. INFLECTRA [Suspect]
     Active Substance: INFLIXIMAB-DYYB
     Indication: Colitis ulcerative
     Dosage: 1000 MG (10 MG/KG), EVERY 8 WEEKS
     Route: 042
     Dates: start: 20220620
  2. INFLECTRA [Suspect]
     Active Substance: INFLIXIMAB-DYYB
     Dosage: 1120 MG (10 MG/KG), EVERY 8 WEEKS
     Route: 042
     Dates: start: 20240227, end: 20240227
  3. INFLECTRA [Suspect]
     Active Substance: INFLIXIMAB-DYYB
     Dosage: 1000 MG, EVERY 8 WEEKS (EQUIVALENT 10 MG/KG)
     Route: 042
     Dates: start: 20240813
  4. INFLECTRA [Suspect]
     Active Substance: INFLIXIMAB-DYYB
     Dosage: 1130 MG, 14 WEEKS (EVERY 8 WEEK, EQUIVALENT 10 MG/KG)
     Route: 042
     Dates: start: 20241119

REACTIONS (1)
  - Peripheral nerve injury [Unknown]
